FAERS Safety Report 5986212-4 (Version None)
Quarter: 2008Q4

REPORT INFORMATION
  Report Type: 
  Country: None (occurrence: None)
  Receive Date: 20081209
  Receipt Date: 20080404
  Transmission Date: 20090506
  Serious: No
  Sender: FDA-Public Use
  Company Number: US-AMGEN-KDL273101

PATIENT
  Sex: Female

DRUGS (2)
  1. ENBREL [Suspect]
     Indication: RHEUMATOID ARTHRITIS
     Route: 058
     Dates: start: 20080331
  2. METHOTREXATE [Concomitant]
     Dates: start: 19980301

REACTIONS (5)
  - FALL [None]
  - FATIGUE [None]
  - JOINT DISLOCATION [None]
  - PERIORBITAL HAEMATOMA [None]
  - SCRATCH [None]
